FAERS Safety Report 6947091-1 (Version None)
Quarter: 2010Q3

REPORT INFORMATION
  Report Type: 
  Country: None (occurrence: None)
  Receive Date: 20100827
  Receipt Date: 20090831
  Transmission Date: 20110219
  Serious: No
  Sender: FDA-Public Use
  Company Number: US-ABBOTT-09P-163-0594608-00

PATIENT
  Sex: Female

DRUGS (4)
  1. NIASPAN [Suspect]
     Indication: BLOOD CHOLESTEROL INCREASED
     Dosage: NIGHTLY
     Dates: start: 20090831
  2. IBUPROFEN [Concomitant]
     Indication: PRODUCT USED FOR UNKNOWN INDICATION
     Dosage: BEFORE NIASPAN.
  3. BENADRYL [Concomitant]
     Indication: FLUSHING
     Dosage: X 2 AFTER THE START OF FLUSHING
  4. WATER [Concomitant]
     Indication: FLUSHING
     Dosage: DRINK COLD WATER

REACTIONS (1)
  - RASH [None]
